FAERS Safety Report 12192060 (Version 1)
Quarter: 2016Q1

REPORT INFORMATION
  Report Type: Report from Study
  Country: AU (occurrence: AU)
  Receive Date: 20160318
  Receipt Date: 20160318
  Transmission Date: 20160526
  Serious: Yes (Other)
  Sender: FDA-Public Use
  Company Number: PHHY2015AU095872

PATIENT
  Age: 80 Year
  Sex: Male

DRUGS (1)
  1. GLIVEC [Suspect]
     Active Substance: IMATINIB MESYLATE
     Indication: CHRONIC MYELOID LEUKAEMIA
     Dosage: 400 MG, QD
     Route: 065

REACTIONS (13)
  - Second primary malignancy [Unknown]
  - Myeloproliferative neoplasm [Unknown]
  - Anaemia macrocytic [Unknown]
  - Atrial fibrillation [Unknown]
  - Asthenia [Unknown]
  - Lethargy [Unknown]
  - Thrombocytopenia [Unknown]
  - Malignant melanoma [Unknown]
  - Cardiac failure congestive [Unknown]
  - Megaloblasts increased [Unknown]
  - Mean cell volume increased [Unknown]
  - Renal impairment [Unknown]
  - Blood iron increased [Unknown]

NARRATIVE: CASE EVENT DATE: 20150204
